FAERS Safety Report 6979297-X (Version None)
Quarter: 2010Q3

REPORT INFORMATION
  Report Type: 
  Country: None (occurrence: None)
  Receive Date: 20100913
  Receipt Date: 20100902
  Transmission Date: 20110219
  Serious: Yes (Hospitalization)
  Sender: FDA-Public Use
  Company Number: JP-JNJFOC-20100700265

PATIENT
  Age: 66 Year
  Sex: Male
  Weight: 55 kg

DRUGS (10)
  1. REMICADE [Suspect]
     Indication: PSORIASIS
     Route: 042
  2. REMICADE [Suspect]
     Route: 042
  3. REMICADE [Suspect]
     Route: 042
  4. OXAROL [Concomitant]
     Indication: PSORIASIS
  5. ANTEBATE [Concomitant]
     Indication: PSORIASIS
  6. RINDERON [Concomitant]
     Indication: PSORIASIS
  7. CYCLOSPORINE [Concomitant]
     Indication: PSORIASIS
     Route: 048
  8. DOVONEX [Concomitant]
     Indication: PSORIASIS
     Route: 048
  9. ALLELOCK [Concomitant]
     Indication: PSORIASIS
     Route: 048
  10. REMICUT [Concomitant]
     Indication: PSORIASIS
     Route: 048

REACTIONS (2)
  - BLOOD CREATININE INCREASED [None]
  - ERYTHEMA MULTIFORME [None]
